FAERS Safety Report 13496945 (Version 1)
Quarter: 2017Q2

REPORT INFORMATION
  Report Type: Other
  Country: AU (occurrence: AU)
  Receive Date: 20170428
  Receipt Date: 20170428
  Transmission Date: 20170830
  Serious: Yes (Other)
  Sender: FDA-Public Use
  Company Number: AU-EMD SERONO-8155717

PATIENT

DRUGS (2)
  1. RECOMBINANT HUMAN FOLLICLE-STIMULATING HORMONE (R-HFSH) [Suspect]
     Active Substance: FOLLITROPIN
     Indication: ASSISTED FERTILISATION
     Dosage: GREATER THAN 250 IU (INTERNATIONAL UNITS)
  2. RECOMBINANT HUMAN GROWTH HORMONE (RHGH) [Suspect]
     Active Substance: SOMATROPIN
     Indication: ASSISTED FERTILISATION

REACTIONS (3)
  - Twin pregnancy [Recovered/Resolved]
  - Live birth [Recovered/Resolved]
  - Maternal exposure during pregnancy [Recovered/Resolved]
